FAERS Safety Report 9059870 (Version 1)
Quarter: 2013Q1

REPORT INFORMATION
  Report Type: Spontaneous
  Country: US (occurrence: None)
  Receive Date: 20130206
  Receipt Date: 20130206
  Transmission Date: 20140127
  Serious: Yes (Life-Threatening, Hospitalization, Other)
  Sender: FDA-Public Use
  Company Number: None

PATIENT
  Age: 39 Year
  Sex: Female
  Weight: 52.3 kg

DRUGS (4)
  1. AZITHROMYCIN [Suspect]
     Indication: INFLUENZA
     Route: 048
     Dates: start: 20110202, end: 20110205
  2. AZITHROMYCIN [Suspect]
     Indication: EAR INFECTION
     Route: 048
     Dates: start: 20110202, end: 20110205
  3. AZITHROMYCIN [Suspect]
     Indication: RHINITIS
     Route: 048
     Dates: start: 20110202, end: 20110205
  4. AZITHROMYCIN [Suspect]
     Indication: PHARYNGITIS
     Route: 048
     Dates: start: 20110202, end: 20110205

REACTIONS (12)
  - Abdominal pain [None]
  - Chest pain [None]
  - Musculoskeletal pain [None]
  - Dizziness [None]
  - Visual impairment [None]
  - Syncope [None]
  - Arrhythmia [None]
  - Blood pressure increased [None]
  - Diarrhoea [None]
  - Vomiting [None]
  - Dyspnoea [None]
  - Headache [None]
